FAERS Safety Report 8470491-8 (Version None)
Quarter: 2012Q2

REPORT INFORMATION
  Report Type: 
  Country: None (occurrence: None)
  Receive Date: 20120627
  Receipt Date: 20110506
  Transmission Date: 20120825
  Serious: No
  Sender: FDA-Public Use
  Company Number: US-MYLANLABS-2011S1009594

PATIENT
  Age: 85 Year
  Sex: Female
  Weight: 61.24 kg

DRUGS (5)
  1. PERFOROMIST [Suspect]
     Indication: CHRONIC OBSTRUCTIVE PULMONARY DISEASE
     Route: 055
     Dates: start: 20110301
  2. LIPITOR [Concomitant]
     Indication: BLOOD CHOLESTEROL
  3. COUMADIN [Concomitant]
  4. DIAZEPAM [Concomitant]
     Indication: ANXIETY
  5. DILTIAZEM HYDROCHOLORIDE [Concomitant]
     Indication: HEART RATE

REACTIONS (1)
  - DRY MOUTH [None]
